FAERS Safety Report 8096065-9 (Version None)
Quarter: 2012Q1

REPORT INFORMATION
  Report Type: 
  Country: None (occurrence: None)
  Receive Date: 20120129
  Receipt Date: 20111215
  Transmission Date: 20120608
  Serious: No
  Sender: FDA-Public Use
  Company Number: US-ABBOTT-11P-163-0883839-00

PATIENT
  Age: 64 Year
  Sex: Male

DRUGS (7)
  1. COUMADIN [Concomitant]
     Indication: PRODUCT USED FOR UNKNOWN INDICATION
     Route: 048
  2. GABAPENTIN [Concomitant]
     Indication: PRODUCT USED FOR UNKNOWN INDICATION
     Route: 048
  3. GEMFIBROZIL [Concomitant]
     Indication: BLOOD CHOLESTEROL
  4. HUMIRA [Suspect]
     Indication: PSORIASIS
     Dates: start: 20111109
  5. OXYBUTYNIN [Concomitant]
     Indication: POLLAKIURIA
  6. COZAAR [Concomitant]
     Indication: PRODUCT USED FOR UNKNOWN INDICATION
     Route: 048
  7. OXYCONTIN [Concomitant]
     Indication: PRODUCT USED FOR UNKNOWN INDICATION
     Route: 048

REACTIONS (1)
  - DRUG INEFFECTIVE [None]
